FAERS Safety Report 17086987 (Version 1)
Quarter: 2019Q4

REPORT INFORMATION
  Report Type: Spontaneous
  Country: TN (occurrence: TN)
  Receive Date: 20191128
  Receipt Date: 20191128
  Transmission Date: 20200122
  Serious: Yes (Other)
  Sender: FDA-Public Use
  Company Number: TN-CHEPLA-C20193099

PATIENT
  Age: 25 Year
  Sex: Male

DRUGS (2)
  1. VALACICLOVIR [Suspect]
     Active Substance: VALACYCLOVIR HYDROCHLORIDE
     Indication: CYTOMEGALOVIRUS INFECTION
     Dosage: 1500 MG ORALLY 3 TIMES DAILY FOR 3 MONTHS
     Route: 048
  2. GANCICLOVIR. [Suspect]
     Active Substance: GANCICLOVIR
     Indication: CYTOMEGALOVIRUS INFECTION
     Dosage: (5 MG/KG EVERY 12 H ADJUSTED ACCORDING TO RENAL FUNCTION) FOR 21 DAYS.
     Route: 042

REACTIONS (1)
  - Cytomegalovirus infection [Recovered/Resolved]
